FAERS Safety Report 4782408-8 (Version None)
Quarter: 2005Q3

REPORT INFORMATION
  Report Type: 
  Country: None (occurrence: None)
  Receive Date: 20050929
  Receipt Date: 20050919
  Transmission Date: 20060218
  Serious: Yes (Hospitalization, Other)
  Sender: FDA-Public Use
  Company Number: US-JNJFOC-20050605523

PATIENT
  Sex: Female
  Weight: 72.58 kg

DRUGS (10)
  1. REMICADE [Suspect]
     Dosage: 0,2,6 WEEKS THEN Q 8 WEEKS
     Route: 042
  2. REMICADE [Suspect]
     Indication: CROHN'S DISEASE
     Route: 042
  3. ZOCOR [Concomitant]
  4. SYNTHROID [Concomitant]
     Indication: HYPOTHYROIDISM
  5. TRIAMCINOLONE [Concomitant]
     Dosage: AS NEEDED
  6. CLARITIN [Concomitant]
  7. PREDNISONE [Concomitant]
     Route: 048
  8. HYDROXYZINE [Concomitant]
     Dosage: WHENEVER NECESSARY
     Route: 048
  9. SORIATANE [Concomitant]
     Route: 048
  10. ASACOL [Concomitant]
     Indication: CROHN'S DISEASE

REACTIONS (5)
  - CROHN'S DISEASE [None]
  - DERMATITIS [None]
  - DIVERTICULITIS [None]
  - MYCOSIS FUNGOIDES [None]
  - URINARY TRACT INFECTION [None]
